FAERS Safety Report 23318393 (Version 2)
Quarter: 2024Q1

REPORT INFORMATION
  Report Type: Spontaneous
  Country: GB (occurrence: GB)
  Receive Date: 20231220
  Receipt Date: 20240209
  Transmission Date: 20240410
  Serious: Yes (Hospitalization, Other)
  Sender: FDA-Public Use
  Company Number: GB-ABBVIE-5549353

PATIENT
  Age: 40 Year
  Sex: Male
  Weight: 88 kg

DRUGS (2)
  1. RINVOQ [Suspect]
     Active Substance: UPADACITINIB
     Indication: Dermatitis atopic
     Dosage: FORM STRENGTH 30 MILLIGRAM
     Route: 048
     Dates: start: 20231023
  2. RINVOQ [Suspect]
     Active Substance: UPADACITINIB
     Indication: Dermatitis atopic
     Dosage: FORM STRENGTH 30 MILLIGRAM
     Route: 048
     Dates: start: 202302, end: 20231015

REACTIONS (15)
  - Diverticulitis intestinal perforated [Unknown]
  - Gastric perforation [Recovered/Resolved]
  - Constipation [Unknown]
  - Chills [Unknown]
  - Heart rate increased [Unknown]
  - Sepsis [Unknown]
  - Pain [Unknown]
  - Diverticulum [Unknown]
  - Rectal haemorrhage [Unknown]
  - Diarrhoea [Unknown]
  - Hypophagia [Unknown]
  - Discomfort [Unknown]
  - Inflammation [Unknown]
  - Fluid intake reduced [Unknown]
  - Decreased appetite [Unknown]

NARRATIVE: CASE EVENT DATE: 20230101
